FAERS Safety Report 5078096-6 (Version None)
Quarter: 2006Q3

REPORT INFORMATION
  Report Type: 
  Country: None (occurrence: None)
  Receive Date: 20060811
  Receipt Date: 20060804
  Transmission Date: 20061208
  Serious: Yes (Other)
  Sender: FDA-Public Use
  Company Number: JP-AVENTIS-200612466JP

PATIENT

DRUGS (2)
  1. LASIX [Suspect]
     Route: 048
  2. ALDACTONE [Suspect]

REACTIONS (1)
  - PEMPHIGOID [None]
